FAERS Safety Report 25154987 (Version 1)
Quarter: 2025Q2

REPORT INFORMATION
  Report Type: Spontaneous
  Country: IL (occurrence: IL)
  Receive Date: 20250403
  Receipt Date: 20250403
  Transmission Date: 20250716
  Serious: Yes (Other)
  Sender: AMGEN
  Company Number: IL-AMGEN-ISRSP2025062011

PATIENT
  Age: 60 Year
  Sex: Female

DRUGS (3)
  1. NPLATE [Suspect]
     Active Substance: ROMIPLOSTIM
     Indication: Thrombocytopenia
     Dosage: 500 MILLIGRAM, QWK
     Route: 065
  2. NPLATE [Suspect]
     Active Substance: ROMIPLOSTIM
     Route: 065
  3. TAVALISSE [Concomitant]
     Active Substance: FOSTAMATINIB
     Indication: Thrombocytopenia

REACTIONS (2)
  - Leukaemia [Unknown]
  - Adverse drug reaction [Unknown]
